FAERS Safety Report 8339425-0 (Version None)
Quarter: 2012Q2

REPORT INFORMATION
  Report Type: 
  Country: None (occurrence: None)
  Receive Date: 20120507
  Receipt Date: 20120427
  Transmission Date: 20120825
  Serious: Yes (Hospitalization)
  Sender: FDA-Public Use
  Company Number: US-BAYER-2011-075612

PATIENT
  Age: 19 Year
  Sex: Female
  Weight: 77 kg

DRUGS (1)
  1. YASMIN [Suspect]
     Dosage: UNK
     Dates: start: 20070101, end: 20080101

REACTIONS (3)
  - HYPERKALAEMIA [None]
  - GALLBLADDER INJURY [None]
  - INJURY [None]
